FAERS Safety Report 15864419 (Version 1)
Quarter: 2019Q1

REPORT INFORMATION
  Report Type: Spontaneous
  Country: JP (occurrence: JP)
  Receive Date: 20190124
  Receipt Date: 20190124
  Transmission Date: 20190417
  Serious: Yes (Death)
  Sender: FDA-Public Use
  Company Number: JP-PFIZER INC-2019028435

PATIENT

DRUGS (3)
  1. NIFURAN [Concomitant]
  2. PL [Concomitant]
     Active Substance: ACETAMINOPHEN\CAFFEINE\PROMETHAZINE\SALICYLAMIDE
  3. LYRICA [Suspect]
     Active Substance: PREGABALIN

REACTIONS (1)
  - Death [Fatal]
